FAERS Safety Report 14411724 (Version 4)
Quarter: 2018Q3

REPORT INFORMATION
  Report Type: Report from Study
  Country: CA (occurrence: CA)
  Receive Date: 20180119
  Receipt Date: 20180905
  Transmission Date: 20181010
  Serious: Yes (Other)
  Sender: FDA-Public Use
  Company Number: CA-REGENERON PHARMACEUTICALS, INC.-2018-10582

PATIENT

DRUGS (1)
  1. EYLEA [Suspect]
     Active Substance: AFLIBERCEPT
     Indication: DIABETIC RETINAL OEDEMA
     Dosage: UNK, Q4WK
     Dates: start: 20141217

REACTIONS (4)
  - Retinal laser coagulation [Unknown]
  - Visual impairment [Not Recovered/Not Resolved]
  - Eye haemorrhage [Unknown]
  - Eye disorder [Unknown]

NARRATIVE: CASE EVENT DATE: 20171225
